FAERS Safety Report 10591708 (Version 1)
Quarter: 2014Q4

REPORT INFORMATION
  Report Type: Spontaneous
  Country: KR (occurrence: KR)
  Receive Date: 20141118
  Receipt Date: 20141118
  Transmission Date: 20150529
  Serious: Yes (Death)
  Sender: FDA-Public Use
  Company Number: KR-MYLANLABS-2014M1010762

PATIENT

DRUGS (9)
  1. THIOPENTAL SODIUM. [Suspect]
     Active Substance: THIOPENTAL SODIUM
     Indication: GENERAL ANAESTHESIA
     Dosage: 175MG
     Route: 065
  2. GLYCOPYRROLATE                     /00196201/ [Concomitant]
     Dosage: 0.2 MG
     Route: 030
  3. REMIFENTANIL [Suspect]
     Active Substance: REMIFENTANIL
     Indication: GENERAL ANAESTHESIA
     Dosage: 0.05 MICROG/KG/MIN
     Route: 065
  4. REMIFENTANIL [Suspect]
     Active Substance: REMIFENTANIL
     Route: 041
  5. DESFLURANE. [Suspect]
     Active Substance: DESFLURANE
     Indication: GENERAL ANAESTHESIA
     Route: 065
  6. GLYCOPYRROLATE                     /00196201/ [Concomitant]
     Dosage: 0.4 MG
     Route: 065
  7. PHENYLEPHRINE [Concomitant]
     Active Substance: PHENYLEPHRINE\PHENYLEPHRINE HYDROCHLORIDE
     Dosage: 50 MICROG/MIN
     Route: 065
  8. ROCURONIUM [Suspect]
     Active Substance: ROCURONIUM BROMIDE
     Indication: GENERAL ANAESTHESIA
     Dosage: 35MG
     Route: 065
  9. NEOSTIGMINE [Concomitant]
     Active Substance: NEOSTIGMINE
     Dosage: 1.5 MG
     Route: 065

REACTIONS (4)
  - Lung infection [Fatal]
  - Pneumonia [Fatal]
  - Porphyria acute [Fatal]
  - Respiratory failure [Fatal]
